FAERS Safety Report 5407837-0 (Version None)
Quarter: 2007Q3

REPORT INFORMATION
  Report Type: 
  Country: None (occurrence: None)
  Receive Date: 20070803
  Receipt Date: 20070726
  Transmission Date: 20080115
  Serious: Yes (Hospitalization)
  Sender: FDA-Public Use
  Company Number: 163-21880-07071580

PATIENT
  Age: 58 Year
  Sex: Female

DRUGS (16)
  1. REVLIMID [Suspect]
     Indication: MULTIPLE MYELOMA
     Dosage: 15 MG, BIW, ORAL; 25 MG, 1 IN 1 D, ORAL
     Route: 048
     Dates: start: 20070415, end: 20070401
  2. REVLIMID [Suspect]
     Indication: MULTIPLE MYELOMA
     Dosage: 15 MG, BIW, ORAL; 25 MG, 1 IN 1 D, ORAL
     Route: 048
     Dates: start: 20070430, end: 20070702
  3. AUGMENTIN '125' [Concomitant]
  4. ACYCLOVIR [Concomitant]
  5. BACTRIM DS [Concomitant]
  6. DECADRON [Concomitant]
  7. PLAVIX [Concomitant]
  8. ASPIRIN [Concomitant]
  9. ALLOPURINOL [Concomitant]
  10. IMDUR [Concomitant]
  11. HYDROCORTISONE [Concomitant]
  12. MESTINON [Concomitant]
  13. PEPCID [Concomitant]
  14. REGLAN [Concomitant]
  15. MARINOL [Concomitant]
  16. AMIODARONE HCL [Concomitant]

REACTIONS (4)
  - JAUNDICE CHOLESTATIC [None]
  - OEDEMA PERIPHERAL [None]
  - PANCYTOPENIA [None]
  - WHITE BLOOD CELL COUNT DECREASED [None]
